FAERS Safety Report 8131987-1 (Version None)
Quarter: 2012Q1

REPORT INFORMATION
  Report Type: 
  Country: None (occurrence: None)
  Receive Date: 20120208
  Receipt Date: 20120202
  Transmission Date: 20120608
  Serious: Yes (Other)
  Sender: FDA-Public Use
  Company Number: AUR-APL-2012-00707

PATIENT
  Age: 34 Week
  Weight: 2.36 kg

DRUGS (3)
  1. VIRACEPT [Suspect]
     Indication: ANTIRETROVIRAL THERAPY
     Dosage: (1250 MG, 1 D), TRANSPLACENTAL
     Route: 064
  2. STAVUDINE [Suspect]
     Indication: ANTIRETROVIRAL THERAPY
     Dosage: (80 MG, 1 D), TRANSDERMAL
     Route: 062
  3. EPIVIR [Suspect]
     Indication: ANTIRETROVIRAL THERAPY
     Dosage: (300 MG, 1 D), TRANSPLACENTAL
     Route: 064

REACTIONS (2)
  - ILEAL ATRESIA [None]
  - MATERNAL DRUGS AFFECTING FOETUS [None]
